FAERS Safety Report 7106777-9 (Version None)
Quarter: 2010Q4

REPORT INFORMATION
  Report Type: 
  Country: None (occurrence: None)
  Receive Date: 20101116
  Receipt Date: 20101111
  Transmission Date: 20110411
  Serious: Yes (Hospitalization)
  Sender: FDA-Public Use
  Company Number: ES-MERCK-1011ESP00008

PATIENT
  Age: 63 Year
  Sex: Female

DRUGS (6)
  1. JANUMET [Suspect]
     Indication: HYPERGLYCAEMIA
     Route: 048
     Dates: start: 20100101, end: 20100702
  2. ENALAPRIL MALEATE [Suspect]
     Indication: HYPERTENSION
     Route: 048
     Dates: end: 20100702
  3. CLONAZEPAM [Concomitant]
     Indication: ANXIETY
     Route: 048
     Dates: start: 19950101
  4. VENLAFAXINE HYDROCHLORIDE [Concomitant]
     Indication: ANXIETY
     Route: 048
     Dates: start: 19950101
  5. BUDESONIDE [Concomitant]
     Indication: ASTHMA
     Route: 055
  6. FUROSEMIDE [Suspect]
     Indication: HYPERTENSION
     Route: 048
     Dates: end: 20100703

REACTIONS (2)
  - DRUG INTERACTION [None]
  - LACTIC ACIDOSIS [None]
